FAERS Safety Report 7815213-6 (Version None)
Quarter: 2011Q4

REPORT INFORMATION
  Report Type: 
  Country: None (occurrence: None)
  Receive Date: 20111014
  Receipt Date: 20111004
  Transmission Date: 20120403
  Serious: Yes (Death, Hospitalization, Other)
  Sender: FDA-Public Use
  Company Number: US-JNJFOC-20061003682

PATIENT
  Sex: Male
  Weight: 115.7 kg

DRUGS (7)
  1. LISINOPRIL [Concomitant]
     Dates: start: 20060101
  2. ADRIAMYCIN PFS [Suspect]
     Indication: T-CELL LYMPHOMA
     Dates: start: 20060910
  3. VINCRISTINE [Suspect]
     Indication: T-CELL LYMPHOMA
     Dates: start: 20060910
  4. CYCLOPHOSPHAMIDE [Suspect]
     Indication: T-CELL LYMPHOMA
     Dates: start: 20060101
  5. AZULFADINE [Concomitant]
     Dates: start: 20010501, end: 20060801
  6. PREDNISONE [Suspect]
     Indication: T-CELL LYMPHOMA
     Dates: start: 20060101
  7. REMICADE [Suspect]
     Indication: RHEUMATOID ARTHRITIS
     Dosage: 3 DOSE INDUCTION FOLLOWED BY MAINT. Q 8 WEEKS, 300 MG ON 29-JUN-2006, TOTAL 27 INFUSIONS
     Route: 042
     Dates: start: 20011001, end: 20060629

REACTIONS (9)
  - T-CELL LYMPHOMA [None]
  - ATRIAL FIBRILLATION [None]
  - MULTI-ORGAN FAILURE [None]
  - DISSEMINATED INTRAVASCULAR COAGULATION [None]
  - SEPSIS [None]
  - ACUTE RESPIRATORY DISTRESS SYNDROME [None]
  - PANCYTOPENIA [None]
  - CHOLECYSTITIS ACUTE [None]
  - GASTROINTESTINAL HAEMORRHAGE [None]
